FAERS Safety Report 4413521-2 (Version None)
Quarter: 2004Q2

REPORT INFORMATION
  Report Type: 
  Country: None (occurrence: None)
  Receive Date: 20040630
  Receipt Date: 20040308
  Transmission Date: 20050107
  Serious: No
  Sender: FDA-Public Use
  Company Number: 04P-163-0252842

PATIENT

DRUGS (9)
  1. HUMIRA [Suspect]
     Indication: RHEUMATOID ARTHRITIS
     Dosage: 40 MG, 1 IN 2 WK, SUBCUTANEOUS
     Route: 058
     Dates: start: 20031201
  2. METHOTREXATE [Concomitant]
  3. PREDNISONE TAB [Concomitant]
  4. HYDROXYCHLOROQUINE PHOSPHATE [Concomitant]
  5. ROFECOXIB [Concomitant]
  6. FOLIC ACID [Concomitant]
  7. CETIRIZINE HCL [Concomitant]
  8. ESTRATEST H.S. [Concomitant]
  9. SERTRALINE HYDROCHLORIDE [Concomitant]

REACTIONS (1)
  - ALOPECIA [None]
